FAERS Safety Report 14879689 (Version 3)
Quarter: 2018Q3

REPORT INFORMATION
  Report Type: Spontaneous
  Country: FR (occurrence: FR)
  Receive Date: 20180511
  Receipt Date: 20180706
  Transmission Date: 20181010
  Serious: Yes (Other)
  Sender: FDA-Public Use
  Company Number: FR-AUROBINDO-AUR-APL-2018-019641

PATIENT
  Age: 24 Year
  Sex: Male

DRUGS (11)
  1. ARIPIPRAZOLE. [Suspect]
     Active Substance: ARIPIPRAZOLE
     Indication: SCHIZOPHRENIA
     Dosage: GRADUAL INTRODUCTION WITHIN ONE MONTH UP TO 30 MG/D ()
     Route: 065
  2. OLANZAPINE. [Interacting]
     Active Substance: OLANZAPINE
     Indication: SCHIZOPHRENIA
     Dosage: UNK
     Route: 065
  3. RISPERIDONE. [Suspect]
     Active Substance: RISPERIDONE
     Indication: SCHIZOPHRENIA
     Dosage: UNK
     Route: 065
  4. VALPROIC ACID TABLET [Suspect]
     Active Substance: VALPROIC ACID
     Indication: SCHIZOPHRENIA
     Dosage: UNK
     Route: 065
  5. CLOZAPINE. [Suspect]
     Active Substance: CLOZAPINE
     Indication: SCHIZOPHRENIA
     Dosage: UNK UNK, QD
     Route: 065
  6. ARIPIPRAZOLE. [Suspect]
     Active Substance: ARIPIPRAZOLE
     Indication: PRODUCT USED FOR UNKNOWN INDICATION
     Dosage: UNK
     Route: 065
  7. HALOPERIDOL. [Suspect]
     Active Substance: HALOPERIDOL
     Dosage: ()
     Route: 065
  8. RISPERIDONE. [Suspect]
     Active Substance: RISPERIDONE
     Dosage: ()
     Route: 065
  9. HALOPERIDOL. [Suspect]
     Active Substance: HALOPERIDOL
     Indication: SCHIZOPHRENIA
     Dosage: UNK
     Route: 065
  10. ARIPIPRAZOLE. [Suspect]
     Active Substance: ARIPIPRAZOLE
     Dosage: GRADUALLY INTRODUCED OVER ONE MONTH AND INCREASED UPTO 30 MG/DAY ()
     Route: 065
  11. OLANZAPINE. [Interacting]
     Active Substance: OLANZAPINE
     Dosage: 30 MG, QD
     Route: 065

REACTIONS (9)
  - Schizophrenia [Unknown]
  - Paradoxical pain [Unknown]
  - Delirium [Unknown]
  - Agitation [Unknown]
  - Delusional disorder, unspecified type [Unknown]
  - Abnormal behaviour [Unknown]
  - Delusion [Unknown]
  - Drug interaction [Unknown]
  - Paradoxical drug reaction [Unknown]
